FAERS Safety Report 18611137 (Version 8)
Quarter: 2021Q3

REPORT INFORMATION
  Report Type: Spontaneous
  Country: US (occurrence: US)
  Receive Date: 20201214
  Receipt Date: 20210810
  Transmission Date: 20211014
  Serious: Yes (Other)
  Sender: FDA-Public Use
  Company Number: US-PFIZER INC-2020488345

PATIENT
  Age: 65 Year
  Sex: Female
  Weight: 62.6 kg

DRUGS (8)
  1. LIOTHYRONINE SODIUM. [Suspect]
     Active Substance: LIOTHYRONINE SODIUM
     Dosage: 50 UG, 3X/DAY
  2. LIOTHYRONINE SODIUM. [Suspect]
     Active Substance: LIOTHYRONINE SODIUM
     Dosage: 50 UG
  3. SYNTHROID [Concomitant]
     Active Substance: LEVOTHYROXINE SODIUM
     Indication: THYROID DISORDER
     Dosage: UNK
  4. LIOTHYRONINE SODIUM. [Suspect]
     Active Substance: LIOTHYRONINE SODIUM
     Dosage: 15 UG, 3X/DAY
  5. LIOTHYRONINE SODIUM. [Suspect]
     Active Substance: LIOTHYRONINE SODIUM
     Indication: AUTOIMMUNE THYROIDITIS
     Dosage: 200 UG, 1X/DAY, [50 MCG, 4 TABLETS BY MOUTH A DAY]
     Route: 048
     Dates: start: 20201118
  6. LIOTHYRONINE SODIUM. [Suspect]
     Active Substance: LIOTHYRONINE SODIUM
     Indication: HYPOTHYROIDISM
     Dosage: 200 UG, 1X/DAY (TAKES 4 BY MOUTH IN THE MORNING)
     Route: 048
  7. ESTRADIOL. [Concomitant]
     Active Substance: ESTRADIOL
     Indication: HORMONE THERAPY
     Dosage: 2 DF, 2X/WEEK, [2 PATCHES TWICE WEEKLY]
  8. ABILIFY [Concomitant]
     Active Substance: ARIPIPRAZOLE
     Dosage: 2 MG, 1X/DAY

REACTIONS (22)
  - Off label use [Unknown]
  - Wrong product administered [Unknown]
  - Drug hypersensitivity [Unknown]
  - Hyperhidrosis [Unknown]
  - Abdominal distension [Unknown]
  - Swelling [Unknown]
  - Fatigue [Unknown]
  - Dyspnoea [Not Recovered/Not Resolved]
  - Flushing [Unknown]
  - Skin swelling [Unknown]
  - Emotional disorder [Unknown]
  - Peripheral coldness [Unknown]
  - Neck pain [Unknown]
  - Headache [Unknown]
  - Erythema [Unknown]
  - Reaction to excipient [Unknown]
  - Product dispensing error [Unknown]
  - Feeling hot [Unknown]
  - Peripheral swelling [Unknown]
  - Swelling face [Unknown]
  - Gluten sensitivity [Unknown]
  - Hot flush [Unknown]

NARRATIVE: CASE EVENT DATE: 20201118
